FAERS Safety Report 25219159 (Version 1)
Quarter: 2025Q2

REPORT INFORMATION
  Report Type: Spontaneous
  Country: US (occurrence: US)
  Receive Date: 20250421
  Receipt Date: 20250421
  Transmission Date: 20250716
  Serious: Yes (Life-Threatening, Hospitalization)
  Sender: Unknown Manufacturer
  Company Number: US-MLMSERVICE-20250331-PI462774-00077-1

PATIENT
  Age: 61 Year
  Sex: Male

DRUGS (2)
  1. CAPECITABINE [Suspect]
     Active Substance: CAPECITABINE
     Indication: Adenocarcinoma of colon
  2. OXALIPLATIN [Suspect]
     Active Substance: OXALIPLATIN
     Indication: Adenocarcinoma of colon

REACTIONS (5)
  - Thrombotic thrombocytopenic purpura [Recovering/Resolving]
  - Encephalopathy [Recovering/Resolving]
  - Thrombocytosis [Recovering/Resolving]
  - Small intestinal obstruction [Recovering/Resolving]
  - Blood creatinine increased [Recovering/Resolving]
